FAERS Safety Report 10204200 (Version 1)
Quarter: 2014Q2

REPORT INFORMATION
  Report Type: Spontaneous
  Country: US (occurrence: US)
  Receive Date: 20140529
  Receipt Date: 20140529
  Transmission Date: 20141212
  Serious: Yes (Other)
  Sender: FDA-Public Use
  Company Number: US-NOVOPROD-411068

PATIENT
  Sex: Male

DRUGS (1)
  1. NOVOLOG [Suspect]
     Indication: PRODUCT USED FOR UNKNOWN INDICATION
     Dosage: 15 U, TID
     Route: 058

REACTIONS (4)
  - Retinal vascular occlusion [Unknown]
  - Blindness [Unknown]
  - Therapeutic response delayed [Unknown]
  - Blood glucose increased [Unknown]
